FAERS Safety Report 5608506-4 (Version None)
Quarter: 2008Q1

REPORT INFORMATION
  Report Type: 
  Country: None (occurrence: None)
  Receive Date: 20080125
  Receipt Date: 20080116
  Transmission Date: 20080703
  Serious: Yes (Other)
  Sender: FDA-Public Use
  Company Number: 18214

PATIENT
  Age: 52 Year
  Sex: Male

DRUGS (23)
  1. VINCRISTINE [Suspect]
     Indication: LYMPHOMA
  2. VINCRISTINE [Suspect]
     Indication: LYMPHOMA
  3. VINCRISTINE [Suspect]
     Indication: LYMPHOMA
  4. VINCRISTINE [Suspect]
     Indication: LYMPHOMA
  5. DOXORUBICIN HCL [Suspect]
     Indication: LYMPHOMA
  6. DOXORUBICIN HCL [Suspect]
     Indication: LYMPHOMA
  7. DOXORUBICIN HCL [Suspect]
     Indication: LYMPHOMA
  8. DOXORUBICIN HCL [Suspect]
     Indication: LYMPHOMA
  9. ETOPOSIDE [Suspect]
     Indication: LYMPHOMA
  10. ETOPOSIDE [Suspect]
     Indication: LYMPHOMA
  11. ETOPOSIDE [Suspect]
     Indication: LYMPHOMA
  12. ETOPOSIDE [Suspect]
     Indication: LYMPHOMA
  13. CYCLOPHOSPHAMIDE [Suspect]
     Indication: LYMPHOMA
  14. CYCLOPHOSPHAMIDE [Suspect]
     Indication: LYMPHOMA
  15. CYCLOPHOSPHAMIDE [Suspect]
     Indication: LYMPHOMA
  16. CYCLOPHOSPHAMIDE [Suspect]
     Indication: LYMPHOMA
  17. PREDNISONE TAB [Suspect]
     Indication: LYMPHOMA
  18. PREDNISONE TAB [Suspect]
     Indication: LYMPHOMA
  19. PREDNISONE TAB [Suspect]
     Indication: LYMPHOMA
  20. PREDNISONE TAB [Suspect]
     Indication: LYMPHOMA
  21. RITUXIMAB [Suspect]
     Indication: LYMPHOMA
  22. RITUXIMAB [Suspect]
     Indication: LYMPHOMA
  23. FILGRASTIM [Concomitant]

REACTIONS (1)
  - CYTOGENETIC ABNORMALITY [None]
